FAERS Safety Report 5581900-6 (Version None)
Quarter: 2008Q1

REPORT INFORMATION
  Report Type: 
  Country: None (occurrence: None)
  Receive Date: 20080104
  Receipt Date: 20071228
  Transmission Date: 20080703
  Serious: Yes (Hospitalization)
  Sender: FDA-Public Use
  Company Number: FR-ROCHE-539018

PATIENT
  Age: 53 Year
  Sex: Male

DRUGS (4)
  1. PEG-INTERFERON ALFA 2A (RO 25-8310) [Suspect]
     Dosage: FORM REPORTED: BOTTLES
     Route: 058
     Dates: start: 20070611, end: 20071126
  2. RIBAVIRIN [Suspect]
     Route: 048
     Dates: start: 20070611, end: 20071126
  3. FLUOXETINE HCL [Concomitant]
     Dates: start: 20071127, end: 20071219
  4. OMEPRAZOLE [Concomitant]
     Dates: start: 20071101, end: 20071219

REACTIONS (1)
  - ASCITES [None]
